FAERS Safety Report 5423378-9 (Version None)
Quarter: 2007Q3

REPORT INFORMATION
  Report Type: 
  Country: None (occurrence: None)
  Receive Date: 20070727
  Receipt Date: 20070524
  Transmission Date: 20080115
  Serious: No
  Sender: FDA-Public Use
  Company Number: 263953

PATIENT
  Age: 80 Year
  Sex: Female

DRUGS (3)
  1. LEVEMIR [Suspect]
     Indication: INSULIN-REQUIRING TYPE II DIABETES MELLITUS
     Dosage: 30 IU, BID, SUBCUTANEOUS
     Route: 058
     Dates: end: 20070501
  2. LEVEMIR [Suspect]
     Dosage: 60 IU, BID, SUBCUTANEOUS
     Route: 058
     Dates: start: 20070501
  3. NOVOLOG [Concomitant]

REACTIONS (2)
  - BLOOD GLUCOSE INCREASED [None]
  - DRUG INEFFECTIVE [None]
